FAERS Safety Report 24887303 (Version 1)
Quarter: 2025Q1

REPORT INFORMATION
  Report Type: Report from Study
  Country: US (occurrence: US)
  Receive Date: 20250127
  Receipt Date: 20250127
  Transmission Date: 20250409
  Serious: Yes (Other)
  Sender: GILEAD
  Company Number: US-GILEAD-2024-0698305

PATIENT
  Age: 54 Year
  Sex: Female

DRUGS (3)
  1. SACITUZUMAB GOVITECAN-HZIY [Suspect]
     Active Substance: SACITUZUMAB GOVITECAN-HZIY
     Indication: Rectal cancer
     Route: 042
     Dates: start: 20241002
  2. LENVIMA [Concomitant]
     Active Substance: LENVATINIB
  3. LENVIMA [Concomitant]
     Active Substance: LENVATINIB

REACTIONS (3)
  - Transfusion [Unknown]
  - Platelet count decreased [Recovered/Resolved]
  - Product use in unapproved indication [Not Recovered/Not Resolved]

NARRATIVE: CASE EVENT DATE: 20241230
